FAERS Safety Report 9891835 (Version 1)
Quarter: 2014Q1

REPORT INFORMATION
  Report Type: Spontaneous
  Country: GB (occurrence: GB)
  Receive Date: 20140212
  Receipt Date: 20140212
  Transmission Date: 20141002
  Serious: Yes (Other)
  Sender: FDA-Public Use
  Company Number: GB-BRISTOL-MYERS SQUIBB COMPANY-20152856

PATIENT
  Age: 84 Year
  Sex: Male

DRUGS (1)
  1. GLUCOPHAGE POWDER [Suspect]

REACTIONS (2)
  - Dementia Alzheimer^s type [Unknown]
  - Dysphagia [Unknown]
